FAERS Safety Report 9956340 (Version 2)
Quarter: 2014Q2

REPORT INFORMATION
  Report Type: Spontaneous
  Country: US (occurrence: US)
  Receive Date: 20140304
  Receipt Date: 20140520
  Transmission Date: 20141212
  Serious: No
  Sender: FDA-Public Use
  Company Number: US-GILEAD-2014-0095992

PATIENT
  Sex: Female

DRUGS (3)
  1. LETAIRIS [Suspect]
     Indication: PULMONARY ARTERIAL HYPERTENSION
     Dosage: 10 MG, QD
     Route: 065
     Dates: start: 20130718
  2. REMODULIN [Concomitant]
  3. ADCIRCA [Concomitant]

REACTIONS (3)
  - Eye swelling [Unknown]
  - Ear infection [Unknown]
  - Nasal congestion [Unknown]
